FAERS Safety Report 5539160-8 (Version None)
Quarter: 2007Q4

REPORT INFORMATION
  Report Type: 
  Country: None (occurrence: None)
  Receive Date: 20071208
  Receipt Date: 20070208
  Transmission Date: 20080405
  Serious: No
  Sender: FDA-Public Use
  Company Number: US-AMGEN-KDL211205

PATIENT

DRUGS (9)
  1. ENBREL [Suspect]
     Indication: RHEUMATOID ARTHRITIS
     Route: 058
  2. ACETAMINOPHEN [Concomitant]
  3. OXYCODONE HCL [Concomitant]
  4. LEVOTHYROXINE SODIUM [Concomitant]
  5. DULOXETINE [Concomitant]
  6. CYMBALTA [Concomitant]
  7. ZYRTEC [Concomitant]
  8. PROVIGIL [Concomitant]
  9. ZOCOR [Concomitant]

REACTIONS (1)
  - ANGIOEDEMA [None]
